FAERS Safety Report 7086640-2 (Version None)
Quarter: 2010Q4

REPORT INFORMATION
  Report Type: 
  Country: None (occurrence: None)
  Receive Date: 20101105
  Receipt Date: 20101028
  Transmission Date: 20110411
  Serious: No
  Sender: FDA-Public Use
  Company Number: US-B.I. PHARMACEUTICALS,INC./RIDGEFIELD-2010-BP-12143BP

PATIENT
  Sex: Female

DRUGS (3)
  1. MIRAPEX [Suspect]
     Indication: PARKINSON'S DISEASE
     Dosage: 1.5 MG
     Route: 048
     Dates: start: 20101001
  2. AZILECT [Concomitant]
     Indication: PARKINSON'S DISEASE
     Dosage: 1 MG
     Route: 048
  3. STALEVO 100 [Concomitant]
     Indication: PARKINSON'S DISEASE
     Dosage: 125 MG
     Route: 048

REACTIONS (2)
  - INSOMNIA [None]
  - MUSCULAR WEAKNESS [None]
